FAERS Safety Report 14225467 (Version 1)
Quarter: 2017Q4

REPORT INFORMATION
  Report Type: Spontaneous
  Country: US (occurrence: US)
  Receive Date: 20171126
  Receipt Date: 20171126
  Transmission Date: 20180321
  Serious: No
  Sender: FDA-Public Use
  Company Number: None

PATIENT
  Age: 35 Year
  Sex: Female
  Weight: 63 kg

DRUGS (1)
  1. ZOLPIDEM ER 6.25MG [Suspect]
     Active Substance: ZOLPIDEM\ZOLPIDEM TARTRATE
     Indication: INSOMNIA
     Dosage: ?          QUANTITY:30 TABLET(S);?
     Route: 048
     Dates: start: 20171121, end: 20171126

REACTIONS (4)
  - Tremor [None]
  - Drug ineffective [None]
  - Sleep terror [None]
  - Palpitations [None]

NARRATIVE: CASE EVENT DATE: 20171125
